FAERS Safety Report 8298503-5 (Version None)
Quarter: 2012Q2

REPORT INFORMATION
  Report Type: 
  Country: None (occurrence: None)
  Receive Date: 20120419
  Receipt Date: 20120109
  Transmission Date: 20120825
  Serious: No
  Sender: FDA-Public Use
  Company Number: US-ABBOTT-12P-163-0893044-00

PATIENT
  Sex: Male

DRUGS (2)
  1. LUPRON DEPOT-PED [Suspect]
  2. LUPRON DEPOT-PED [Suspect]
     Indication: PRECOCIOUS PUBERTY
     Dosage: LOT NUMBER AND EXPIRATION DATES WERE UNAVAILABLE.
     Route: 050
     Dates: start: 20111222

REACTIONS (4)
  - ARTHRALGIA [None]
  - GAIT DISTURBANCE [None]
  - JOINT SWELLING [None]
  - INJECTION SITE DISCOMFORT [None]
